FAERS Safety Report 13651183 (Version 9)
Quarter: 2017Q4

REPORT INFORMATION
  Report Type: Report from Study
  Country: TW (occurrence: TW)
  Receive Date: 20170614
  Receipt Date: 20171016
  Transmission Date: 20180320
  Serious: Yes (Death, Life-Threatening, Hospitalization, Other)
  Sender: FDA-Public Use
  Company Number: TW-INCYTE CORPORATION-2017IN004562

PATIENT

DRUGS (5)
  1. CELECOXIB. [Concomitant]
     Active Substance: CELECOXIB
     Dosage: 200 MG, QD
     Route: 065
  2. CELECOXIB. [Concomitant]
     Active Substance: CELECOXIB
     Dosage: 200 MG, QD
     Route: 065
  3. JAKAVI [Suspect]
     Active Substance: RUXOLITINIB
     Dosage: 5 MG, QD
     Route: 048
     Dates: start: 20170530, end: 20170904
  4. CELECOXIB. [Concomitant]
     Active Substance: CELECOXIB
     Indication: OSTEOARTHRITIS
     Dosage: 200 MG, QD
     Route: 065
  5. JAKAVI [Suspect]
     Active Substance: RUXOLITINIB
     Indication: MYELOFIBROSIS
     Dosage: 10 MG, QD (DAILY)
     Route: 048
     Dates: start: 20140206, end: 20170524

REACTIONS (26)
  - Pneumonia [Not Recovered/Not Resolved]
  - Coronary artery disease [Recovered/Resolved]
  - Ecchymosis [Recovered/Resolved]
  - Anaemia [Recovered/Resolved with Sequelae]
  - Myocardial necrosis marker increased [Not Recovered/Not Resolved]
  - Septic shock [Recovering/Resolving]
  - Dry mouth [Not Recovered/Not Resolved]
  - Thrombocytopenia [Recovered/Resolved]
  - Pneumonia fungal [Recovered/Resolved with Sequelae]
  - Osteoarthritis [Recovered/Resolved]
  - Dyspnoea [Recovering/Resolving]
  - Pneumonia [Fatal]
  - Urinary tract infection [Fatal]
  - Urosepsis [Unknown]
  - Productive cough [Not Recovered/Not Resolved]
  - Stress [Recovered/Resolved]
  - Myeloproliferative neoplasm [Recovered/Resolved]
  - Stress [Not Recovered/Not Resolved]
  - Acute respiratory failure [Recovered/Resolved with Sequelae]
  - Pseudomonas infection [Recovered/Resolved with Sequelae]
  - Chronic obstructive pulmonary disease [Recovered/Resolved]
  - Dry mouth [Recovered/Resolved]
  - Normochromic normocytic anaemia [Unknown]
  - Pleural effusion [Unknown]
  - Hyperkalaemia [Fatal]
  - Ecchymosis [Not Recovered/Not Resolved]

NARRATIVE: CASE EVENT DATE: 20170528
